FAERS Safety Report 17111198 (Version 4)
Quarter: 2020Q3

REPORT INFORMATION
  Report Type: Spontaneous
  Country: PT (occurrence: PT)
  Receive Date: 20191204
  Receipt Date: 20200804
  Transmission Date: 20201102
  Serious: Yes (Hospitalization, Other)
  Sender: FDA-Public Use
  Company Number: PT-PFIZER INC-2019520066

PATIENT
  Age: 89 Year
  Sex: Female

DRUGS (1)
  1. AMIODARONE HCL [Suspect]
     Active Substance: AMIODARONE HYDROCHLORIDE
     Indication: ATRIAL FIBRILLATION
     Dosage: 200 MG

REACTIONS (8)
  - Pulmonary toxicity [Recovering/Resolving]
  - Dyspnoea [Recovering/Resolving]
  - Fibrosis [Unknown]
  - Eosinophil count increased [Unknown]
  - Lung opacity [Recovering/Resolving]
  - Cough [Recovering/Resolving]
  - Rales [Recovering/Resolving]
  - Toxicity to various agents [Recovering/Resolving]
